FAERS Safety Report 15606163 (Version 1)
Quarter: 2018Q4

REPORT INFORMATION
  Report Type: Spontaneous
  Country: GR (occurrence: GR)
  Receive Date: 20181112
  Receipt Date: 20181112
  Transmission Date: 20190205
  Serious: Yes (Life-Threatening)
  Sender: FDA-Public Use
  Company Number: GR-ACCORD-091496

PATIENT
  Age: 77 Year
  Sex: Female
  Weight: 70 kg

DRUGS (7)
  1. SANDIMMUN NEORAL [Concomitant]
     Active Substance: CYCLOSPORINE
     Dosage: OCCASIONALLY FOR ABOUT A MONTH PER YEAR
     Route: 048
     Dates: start: 2001
  2. FOSAVANCE [Concomitant]
     Active Substance: ALENDRONATE SODIUM\CHOLECALCIFEROL
     Dosage: STRENGTH:70 MG/5600 IU
     Route: 048
     Dates: start: 2000, end: 2014
  3. FILICINE [Concomitant]
     Indication: RHEUMATOID ARTHRITIS
     Route: 048
     Dates: start: 1990, end: 2014
  4. METHOTREXATE. [Suspect]
     Active Substance: METHOTREXATE
     Indication: RHEUMATOID ARTHRITIS
     Dosage: STRENGTH: 2.5 MG
     Route: 048
     Dates: start: 1990, end: 2014
  5. IDEOS [Concomitant]
     Active Substance: CALCIUM CARBONATE\CHOLECALCIFEROL
     Route: 048
     Dates: start: 2000, end: 2014
  6. VERBORIL [Concomitant]
     Route: 048
     Dates: start: 1990, end: 2014
  7. DONAROT [Concomitant]
     Route: 048
     Dates: start: 1990, end: 2014

REACTIONS (1)
  - Renal cancer [Unknown]
